FAERS Safety Report 17766520 (Version 3)
Quarter: 2020Q4

REPORT INFORMATION
  Report Type: Spontaneous
  Country: US (occurrence: US)
  Receive Date: 20200511
  Receipt Date: 20201122
  Transmission Date: 20210113
  Serious: No
  Sender: FDA-Public Use
  Company Number: NVSC2020US125171

PATIENT
  Sex: Male

DRUGS (2)
  1. PROMACTA [Suspect]
     Active Substance: ELTROMBOPAG OLAMINE
     Indication: BLOOD DISORDER
     Dosage: 25 MG, QD
     Route: 048
     Dates: start: 202004
  2. PROMACTA [Suspect]
     Active Substance: ELTROMBOPAG OLAMINE
     Indication: IMMUNE SYSTEM DISORDER
     Dosage: 75 MG, QD
     Route: 048
     Dates: start: 20200407

REACTIONS (2)
  - Headache [Unknown]
  - Product use in unapproved indication [Unknown]
